FAERS Safety Report 15976104 (Version 1)
Quarter: 2019Q1

REPORT INFORMATION
  Report Type: Spontaneous
  Country: US (occurrence: US)
  Receive Date: 20190218
  Receipt Date: 20190218
  Transmission Date: 20190418
  Serious: No
  Sender: FDA-Public Use
  Company Number: US-PFIZER INC-2019070126

PATIENT
  Age: 69 Year
  Sex: Male
  Weight: 94.79 kg

DRUGS (2)
  1. SILDENAFIL CITRATE. [Suspect]
     Active Substance: SILDENAFIL CITRATE
     Dosage: UNK UNK, 1X/DAY (AT NIGHT)
  2. TYVASO [Suspect]
     Active Substance: TREPROSTINIL
     Indication: PULMONARY ARTERIAL HYPERTENSION
     Dosage: UNK, 4X/DAY (10-20 BREATHS INHALED)
     Route: 055
     Dates: start: 20180928

REACTIONS (1)
  - Insomnia [Unknown]
